FAERS Safety Report 24552329 (Version 1)
Quarter: 2024Q4

REPORT INFORMATION
  Report Type: Spontaneous
  Country: US (occurrence: US)
  Receive Date: 20241026
  Receipt Date: 20241026
  Transmission Date: 20250115
  Serious: No
  Sender: TARO
  Company Number: US-TARO PHARMACEUTICALS USA INC.-2024TAR01613

PATIENT
  Age: 38 Year
  Sex: Female

DRUGS (2)
  1. ADAPALENE [Suspect]
     Active Substance: ADAPALENE
     Indication: Acne
     Dosage: UNK UNK, BID
     Route: 065
     Dates: start: 202405, end: 202408
  2. ADAPALENE [Suspect]
     Active Substance: ADAPALENE
     Indication: Acne

REACTIONS (2)
  - Drug ineffective [Not Recovered/Not Resolved]
  - Condition aggravated [Not Recovered/Not Resolved]
